FAERS Safety Report 20135564 (Version 1)
Quarter: 2021Q4

REPORT INFORMATION
  Report Type: Spontaneous
  Country: US (occurrence: None)
  Receive Date: 20211201
  Receipt Date: 20211201
  Transmission Date: 20220304
  Serious: Yes (Other)
  Sender: FDA-Public Use
  Company Number: None

PATIENT
  Age: 4 Day
  Sex: Female
  Weight: 3.2 kg

DRUGS (4)
  1. WELLBUTRIN XL [Suspect]
     Active Substance: BUPROPION HYDROCHLORIDE
     Indication: Product used for unknown indication
  2. PROZAC [Suspect]
     Active Substance: FLUOXETINE HYDROCHLORIDE
  3. FLUTICASONE [Suspect]
     Active Substance: FLUTICASONE
  4. ZYRTEC [Suspect]
     Active Substance: CETIRIZINE HYDROCHLORIDE

REACTIONS (1)
  - Hyperbilirubinaemia [None]

NARRATIVE: CASE EVENT DATE: 20190501
